FAERS Safety Report 16348569 (Version 3)
Quarter: 2019Q3

REPORT INFORMATION
  Report Type: Report from Study
  Country: None (occurrence: BE)
  Receive Date: 20190523
  Receipt Date: 20190726
  Transmission Date: 20191004
  Serious: Yes (Death, Life-Threatening, Hospitalization, Disabling, Other)
  Sender: FDA-Public Use
  Company Number: BE-ABBVIE-19P-013-2793035-00

PATIENT
  Age: 69 Year
  Sex: Male

DRUGS (6)
  1. LIPITOR [Concomitant]
     Active Substance: ATORVASTATIN CALCIUM
     Indication: HYPERLIPIDAEMIA
     Route: 048
     Dates: start: 20180801
  2. D-CURE [Concomitant]
     Active Substance: CHOLECALCIFEROL
     Indication: VITAMIN D DEFICIENCY
     Route: 048
     Dates: start: 20180801
  3. SYNTRON MITIS [Concomitant]
     Indication: THROMBOSIS PROPHYLAXIS
     Dosage: ONE DAY: 4 CPS, TWO DAYS: 3 CPS
     Route: 048
     Dates: start: 20180801
  4. HUMIRA [Suspect]
     Active Substance: ADALIMUMAB
     Indication: COLITIS ULCERATIVE
     Route: 058
     Dates: start: 20120124, end: 201902
  5. FLUOXETINE EG [Concomitant]
     Indication: DEPRESSION
     Route: 048
     Dates: start: 20180801
  6. ISOTEN [Concomitant]
     Active Substance: BISOPROLOL FUMARATE
     Indication: HYPERTENSION
     Route: 048
     Dates: start: 20180801

REACTIONS (2)
  - Circulatory collapse [Fatal]
  - Cardiac failure [Fatal]

NARRATIVE: CASE EVENT DATE: 20190303
